FAERS Safety Report 10432511 (Version 2)
Quarter: 2014Q4

REPORT INFORMATION
  Report Type: Spontaneous
  Country: US (occurrence: US)
  Receive Date: 20140905
  Receipt Date: 20141017
  Transmission Date: 20150528
  Serious: Yes (Other)
  Sender: FDA-Public Use
  Company Number: US-JNJFOC-20140900806

PATIENT
  Age: 86 Year
  Sex: Male
  Weight: 65.77 kg

DRUGS (12)
  1. XARELTO [Suspect]
     Active Substance: RIVAROXABAN
     Indication: ATRIAL FIBRILLATION
     Route: 048
     Dates: start: 20140819
  2. PREVACID [Concomitant]
     Active Substance: LANSOPRAZOLE
     Indication: GASTRIC DISORDER
     Route: 048
  3. CARBIDOPA/LEVODOPA [Concomitant]
     Active Substance: CARBIDOPA\LEVODOPA
     Indication: PARKINSON^S DISEASE
     Dosage: 25-200
     Route: 048
     Dates: start: 2014
  4. HYDROCODONE [Concomitant]
     Active Substance: HYDROCODONE
     Indication: PAIN
     Dosage: 10-325MG
     Route: 065
  5. FLOMAX [Concomitant]
     Active Substance: TAMSULOSIN HYDROCHLORIDE
     Indication: MICTURITION DISORDER
     Route: 048
  6. PROZAC [Concomitant]
     Active Substance: FLUOXETINE HYDROCHLORIDE
     Route: 048
  7. XARELTO [Suspect]
     Active Substance: RIVAROXABAN
     Indication: CEREBROVASCULAR ACCIDENT PROPHYLAXIS
     Route: 048
     Dates: start: 20140819
  8. FUROSEMIDE. [Concomitant]
     Active Substance: FUROSEMIDE
     Indication: JOINT SWELLING
     Route: 048
  9. SIMVASTATIN. [Concomitant]
     Active Substance: SIMVASTATIN
     Indication: BLOOD CHOLESTEROL
     Route: 048
  10. CARBIDOPA/LEVODOPA [Concomitant]
     Active Substance: CARBIDOPA\LEVODOPA
     Indication: PARKINSON^S DISEASE
     Dosage: 25-100
     Route: 048
  11. MAGNESIUM OXIDE. [Concomitant]
     Active Substance: MAGNESIUM OXIDE
     Indication: BLOOD MAGNESIUM DECREASED
     Route: 048
     Dates: start: 201408
  12. DIAZEPAM. [Concomitant]
     Active Substance: DIAZEPAM
     Indication: NERVOUSNESS
     Route: 048
     Dates: start: 2010

REACTIONS (6)
  - Blood blister [Recovered/Resolved]
  - Ear haemorrhage [Unknown]
  - Ear discomfort [Recovered/Resolved]
  - Tympanic membrane perforation [Not Recovered/Not Resolved]
  - Scab [Recovered/Resolved]
  - Ear pain [Not Recovered/Not Resolved]

NARRATIVE: CASE EVENT DATE: 201408
